FAERS Safety Report 6130893-1 (Version None)
Quarter: 2009Q1

REPORT INFORMATION
  Report Type: 
  Country: None (occurrence: None)
  Receive Date: 20090325
  Receipt Date: 20090323
  Transmission Date: 20090719
  Serious: Yes (Disabling)
  Sender: FDA-Public Use
  Company Number: US-BRISTOL-MYERS SQUIBB COMPANY-14528608

PATIENT
  Age: 30 Year
  Sex: Female

DRUGS (5)
  1. ABILIFY [Suspect]
     Indication: DEPRESSION
     Dosage: THERAPY WAS INCREASED FROM 5MG TO 10MG;DECREASED TO 5 MG
     Route: 048
     Dates: start: 20081119, end: 20090114
  2. ANTIDEPRESSANT [Concomitant]
  3. LITHIUM CARBONATE [Concomitant]
  4. EMSAM [Concomitant]
     Dosage: 2+ YEARS
  5. XANAX [Concomitant]
     Dosage: 2+ YEARS; XANAX (XR)

REACTIONS (1)
  - GENERALISED OEDEMA [None]
